FAERS Safety Report 7076446-2 (Version None)
Quarter: 2010Q4

REPORT INFORMATION
  Report Type: 
  Country: None (occurrence: None)
  Receive Date: 20101101
  Receipt Date: 20101018
  Transmission Date: 20110411
  Serious: No
  Sender: FDA-Public Use
  Company Number: CA-ELI_LILLY_AND_COMPANY-CA201010003791

PATIENT
  Sex: Male

DRUGS (15)
  1. ZYPREXA [Suspect]
     Dosage: 15 MG, DAILY (1/D)
     Route: 048
     Dates: start: 19970101
  2. ZOCOR [Concomitant]
     Dosage: 20 MG, DAILY (1/D)
     Route: 065
     Dates: start: 20010305
  3. BIAXIN [Concomitant]
     Dosage: 500 MG, 2/D
     Route: 065
     Dates: start: 20011018
  4. ADVAIR DISKUS 100/50 [Concomitant]
     Dosage: UNK, 1 PUFF TWICE DAILY
     Route: 055
     Dates: start: 20011018
  5. AMANTADINE [Concomitant]
     Dosage: 100 MG, 2/D
     Route: 065
     Dates: start: 20020328
  6. INTRASITE                          /00007001/ [Concomitant]
     Dosage: UNK, AS NEEDED
     Route: 061
     Dates: start: 20020508
  7. POLYTRIM [Concomitant]
     Dosage: 2 ML, 3/D
     Route: 047
     Dates: start: 20020926
  8. FERROUS GLUCONATE [Concomitant]
     Dosage: 300 MG, 2/D
     Route: 065
     Dates: start: 20030602
  9. CLINDAMYCIN [Concomitant]
     Dosage: 600 MG, DAILY (1/D)
     Route: 065
     Dates: start: 20030515
  10. ZITHROMAX [Concomitant]
     Dosage: 250 MG, 2/D
     Route: 065
     Dates: start: 20030708
  11. WESTCORT [Concomitant]
     Dosage: UNK, AS NEEDED
     Route: 065
     Dates: start: 20031017
  12. PAROXETINE HCL [Concomitant]
     Indication: DEPRESSION
     Dosage: 20 MG, DAILY (1/D)
     Dates: start: 20031014
  13. PAROXETINE HCL [Concomitant]
     Dosage: 50 MG, DAILY (1/D)
     Route: 065
  14. FOSINOPRIL SODIUM [Concomitant]
     Dosage: 20 MG, DAILY (1/D)
     Route: 065
     Dates: start: 20040611
  15. METOPROLOL [Concomitant]
     Dosage: 50 MG, DAILY (1/D)
     Route: 065
     Dates: start: 20050616

REACTIONS (6)
  - BLOOD CHOLESTEROL INCREASED [None]
  - BLOOD TRIGLYCERIDES INCREASED [None]
  - CHOLELITHIASIS [None]
  - DIABETES MELLITUS [None]
  - PLATELET COUNT DECREASED [None]
  - WEIGHT INCREASED [None]
